FAERS Safety Report 13067548 (Version 1)
Quarter: 2016Q4

REPORT INFORMATION
  Report Type: Report from Study
  Country: IT (occurrence: IT)
  Receive Date: 20161228
  Receipt Date: 20161228
  Transmission Date: 20170207
  Serious: Yes (Death, Other)
  Sender: FDA-Public Use
  Company Number: IT-TEVA-722501ACC

PATIENT
  Age: 64 Year
  Sex: Female

DRUGS (4)
  1. FOLINIC ACID [Suspect]
     Active Substance: LEUCOVORIN
     Dates: start: 201305
  2. AFLIBERCEPT [Suspect]
     Active Substance: AFLIBERCEPT
     Indication: ADENOCARCINOMA OF COLON
     Dates: start: 201305
  3. 5-FLUOROURACILE [Suspect]
     Active Substance: FLUOROURACIL
     Indication: ADENOCARCINOMA OF COLON
     Dates: start: 201305
  4. IRINOTECAN [Suspect]
     Active Substance: IRINOTECAN
     Indication: ADENOCARCINOMA OF COLON
     Dates: start: 201305

REACTIONS (6)
  - Osteonecrosis of jaw [Unknown]
  - Neutropenia [Unknown]
  - Diarrhoea [Unknown]
  - Death [Fatal]
  - Stomatitis [Unknown]
  - Deep vein thrombosis [Unknown]
